FAERS Safety Report 9866034 (Version 1)
Quarter: 2014Q1

REPORT INFORMATION
  Report Type: Spontaneous
  Country: US (occurrence: US)
  Receive Date: 20140203
  Receipt Date: 20140203
  Transmission Date: 20141002
  Serious: No
  Sender: FDA-Public Use
  Company Number: US-ALLERGAN-1314037US

PATIENT
  Sex: Male

DRUGS (1)
  1. RESTASIS [Suspect]
     Indication: DRY EYE
     Dosage: 2 UNK, UNK
     Route: 047
     Dates: start: 20130902, end: 20130909

REACTIONS (1)
  - Instillation site pain [Recovering/Resolving]
